FAERS Safety Report 15656671 (Version 1)
Quarter: 2018Q4

REPORT INFORMATION
  Report Type: Spontaneous
  Country: US (occurrence: US)
  Receive Date: 20181126
  Receipt Date: 20181126
  Transmission Date: 20190205
  Serious: Yes (Hospitalization)
  Sender: FDA-Public Use
  Company Number: None

PATIENT
  Sex: Female

DRUGS (11)
  1. TRIAMT/HCTZ 37.5-25 [Concomitant]
  2. PERCOCET [Concomitant]
     Active Substance: ACETAMINOPHEN\OXYCODONE HYDROCHLORIDE
  3. LETROZOLE 2.5MG [Concomitant]
     Active Substance: LETROZOLE
  4. EXEMESTANE 25MG [Concomitant]
     Active Substance: EXEMESTANE
  5. TYLENOL 325MG [Concomitant]
  6. CALCIUM+D3 600-800 [Concomitant]
  7. LOSARTAN 50MG [Concomitant]
     Active Substance: LOSARTAN
  8. AFINITOR [Suspect]
     Active Substance: EVEROLIMUS
     Indication: BREAST CANCER FEMALE
     Route: 048
     Dates: start: 20180831
  9. MELOXICAM 15MG [Concomitant]
     Active Substance: MELOXICAM
  10. XGEVA [Concomitant]
     Active Substance: DENOSUMAB
  11. ZOLPIDEM [Concomitant]
     Active Substance: ZOLPIDEM\ZOLPIDEM TARTRATE

REACTIONS (1)
  - Intensive care [None]
